FAERS Safety Report 9636579 (Version 2)
Quarter: 2013Q4

REPORT INFORMATION
  Report Type: Spontaneous
  Country: US (occurrence: US)
  Receive Date: 20131021
  Receipt Date: 20131126
  Transmission Date: 20140711
  Serious: No
  Sender: FDA-Public Use
  Company Number: US-009507513-1310USA009414

PATIENT
  Sex: Male
  Weight: 79.37 kg

DRUGS (3)
  1. CLARITIN [Suspect]
     Indication: RHINORRHOEA
     Dosage: 10 MG, QD
     Route: 048
     Dates: start: 20130916, end: 20130930
  2. CLARITIN [Suspect]
     Indication: EYE PRURITUS
  3. CLARITIN [Suspect]
     Indication: LACRIMATION INCREASED

REACTIONS (2)
  - Condition aggravated [Unknown]
  - Drug ineffective [Unknown]
